FAERS Safety Report 10924433 (Version 3)
Quarter: 2015Q3

REPORT INFORMATION
  Report Type: Spontaneous
  Country: US (occurrence: US)
  Receive Date: 20150318
  Receipt Date: 20150805
  Transmission Date: 20151125
  Serious: Yes (Life-Threatening, Other)
  Sender: FDA-Public Use
  Company Number: US-JNJFOC-20141016976

PATIENT
  Age: 80 Year
  Sex: Female
  Weight: 70.76 kg

DRUGS (5)
  1. KETOCONAZOLE 2% SHAMPOO [Suspect]
     Active Substance: KETOCONAZOLE
     Indication: PSORIASIS
     Route: 061
     Dates: start: 20141019, end: 20141019
  2. KETOCONAZOLE 2% SHAMPOO [Suspect]
     Active Substance: KETOCONAZOLE
     Indication: PSORIASIS
     Route: 061
     Dates: start: 20141014, end: 201410
  3. KETOCONAZOLE 2% SHAMPOO [Suspect]
     Active Substance: KETOCONAZOLE
     Indication: SKIN EXFOLIATION
     Route: 061
     Dates: start: 20141014, end: 201410
  4. KETOCONAZOLE 2% SHAMPOO [Suspect]
     Active Substance: KETOCONAZOLE
     Indication: SKIN EXFOLIATION
     Route: 061
     Dates: start: 20141019, end: 20141019
  5. ALBUTEROL. [Concomitant]
     Active Substance: ALBUTEROL
     Indication: CHRONIC OBSTRUCTIVE PULMONARY DISEASE
     Route: 055

REACTIONS (5)
  - Cough [Recovering/Resolving]
  - Dyspnoea [Recovered/Resolved]
  - Adverse event [Unknown]
  - Off label use [Unknown]
  - Hypersensitivity [Recovered/Resolved]

NARRATIVE: CASE EVENT DATE: 20141014
